FAERS Safety Report 6719496-5 (Version None)
Quarter: 2010Q2

REPORT INFORMATION
  Report Type: 
  Country: None (occurrence: None)
  Receive Date: 20100507
  Receipt Date: 20100503
  Transmission Date: 20101027
  Serious: Yes (Other)
  Sender: FDA-Public Use
  Company Number: 2010SP023693

PATIENT
  Age: 48 Year
  Sex: Female
  Weight: 60 kg

DRUGS (7)
  1. ROCURONIUM BROMIDE [Suspect]
     Indication: NEUROMUSCULAR BLOCKING THERAPY
     Dosage: 40 MG;
     Dates: start: 20100422
  2. FENTANYL [Concomitant]
  3. PROPOFOL [Concomitant]
  4. SUXAMETHONIUM [Concomitant]
  5. MIDAZOLAM HCL [Concomitant]
  6. EPHEDRINE [Concomitant]
  7. PHENYLEPHRINE [Concomitant]

REACTIONS (4)
  - HYPOTHERMIA [None]
  - LARGE INTESTINAL OBSTRUCTION [None]
  - MALIGNANT ANORECTAL NEOPLASM [None]
  - NEUROMUSCULAR BLOCKADE [None]
